FAERS Safety Report 6143426-0 (Version None)
Quarter: 2009Q2

REPORT INFORMATION
  Report Type: 
  Country: None (occurrence: None)
  Receive Date: 20090403
  Receipt Date: 20090331
  Transmission Date: 20091009
  Serious: Yes (Hospitalization)
  Sender: FDA-Public Use
  Company Number: JP-AVENTIS-200910797JP

PATIENT
  Age: 78 Year
  Sex: Female

DRUGS (6)
  1. LASIX [Suspect]
     Route: 042
     Dates: start: 20070130, end: 20070131
  2. MANITOL [Suspect]
     Dosage: DOSE: 20% 300 ML
     Route: 042
     Dates: start: 20070130, end: 20070130
  3. HEPARIN [Suspect]
     Route: 042
     Dates: start: 20070201, end: 20070202
  4. HEPARIN [Suspect]
     Route: 042
     Dates: start: 20070204, end: 20070212
  5. DIGITALIS TAB [Concomitant]
  6. BLOOD PLATELET [Concomitant]
     Indication: THROMBOCYTOPENIA

REACTIONS (4)
  - CEREBRAL DISORDER [None]
  - DEHYDRATION [None]
  - SUBDURAL HAEMATOMA [None]
  - THROMBOCYTOPENIA [None]
